FAERS Safety Report 10025673 (Version 1)
Quarter: 2014Q1

REPORT INFORMATION
  Report Type: Spontaneous
  Country: CL (occurrence: None)
  Receive Date: 20140314
  Receipt Date: 20140314
  Transmission Date: 20141002
  Serious: Yes (Hospitalization)
  Sender: FDA-Public Use
  Company Number: FK201400796

PATIENT
  Age: 14 Year
  Sex: Male

DRUGS (1)
  1. CEFTRIAXONE [Suspect]
     Indication: PRODUCT USED FOR UNKNOWN INDICATION
     Route: 042
     Dates: start: 20140202, end: 20140202

REACTIONS (1)
  - Hypersensitivity [None]
